FAERS Safety Report 6883997-X (Version None)
Quarter: 2010Q3

REPORT INFORMATION
  Report Type: 
  Country: None (occurrence: None)
  Receive Date: 20100729
  Receipt Date: 20100715
  Transmission Date: 20110219
  Serious: Yes (Other)
  Sender: FDA-Public Use
  Company Number: PHHY2010MX38523

PATIENT
  Age: 70 Year
  Sex: Female

DRUGS (3)
  1. ZOMETA [Suspect]
     Indication: CERVIX CARCINOMA
     Dosage: 4 MG/5 ML PER YEAR
     Route: 065
     Dates: start: 20040715
  2. TAFIROL [Concomitant]
  3. TRADOL [Concomitant]

REACTIONS (3)
  - FALL [None]
  - FRACTURED COCCYX [None]
  - PELVIC FRACTURE [None]
